FAERS Safety Report 12147047 (Version 2)
Quarter: 2016Q1

REPORT INFORMATION
  Report Type: Report from Study
  Country: US (occurrence: US)
  Receive Date: 20160304
  Receipt Date: 20160329
  Transmission Date: 20160526
  Serious: Yes (Death)
  Sender: FDA-Public Use
  Company Number: US-ACTELION-A-NJ2016-130311

PATIENT
  Age: 73 Year
  Sex: Male

DRUGS (3)
  1. OXYGEN. [Concomitant]
     Active Substance: OXYGEN
     Dosage: 3 L/MIN, UNK
  2. SILDENAFIL. [Concomitant]
     Active Substance: SILDENAFIL
  3. MACITENTAN [Suspect]
     Active Substance: MACITENTAN
     Indication: PULMONARY HYPERTENSION
     Dosage: 10 MG, QD
     Route: 048
     Dates: start: 201407, end: 20160204

REACTIONS (4)
  - Pulmonary hypertension [Fatal]
  - Disease progression [Fatal]
  - Condition aggravated [Unknown]
  - Oxygen saturation decreased [Unknown]
